FAERS Safety Report 12714159 (Version 1)
Quarter: 2016Q3

REPORT INFORMATION
  Report Type: Spontaneous
  Country: US (occurrence: US)
  Receive Date: 20160905
  Receipt Date: 20160905
  Transmission Date: 20161109
  Serious: No
  Sender: FDA-Public Use
  Company Number: US-JAZZ-2016-US-008702

PATIENT
  Sex: Male

DRUGS (49)
  1. AMLODIPINE BESYLATE. [Concomitant]
     Active Substance: AMLODIPINE BESYLATE
  2. RANEXA [Concomitant]
     Active Substance: RANOLAZINE
  3. GABAPENTIN. [Concomitant]
     Active Substance: GABAPENTIN
  4. PROVENTIL HFA [Concomitant]
     Active Substance: ALBUTEROL SULFATE
  5. CYCLOBENZAPRINE [Concomitant]
     Active Substance: CYCLOBENZAPRINE
  6. XYREM [Suspect]
     Active Substance: SODIUM OXYBATE
     Dosage: 4.5 G, BID
     Route: 048
     Dates: start: 201112
  7. ALLERGEN [Concomitant]
     Active Substance: UNSPECIFIED INGREDIENT
  8. PROBIOTIC [Concomitant]
     Active Substance: PROBIOTICS NOS
  9. LISINOPRIL. [Concomitant]
     Active Substance: LISINOPRIL
  10. PLAVIX [Concomitant]
     Active Substance: CLOPIDOGREL BISULFATE
  11. ALLERGEN [Concomitant]
     Active Substance: UNSPECIFIED INGREDIENT
  12. ASPIRIN. [Concomitant]
     Active Substance: ASPIRIN
  13. FLOMAX [Concomitant]
     Active Substance: TAMSULOSIN HYDROCHLORIDE
  14. NICOTINE. [Concomitant]
     Active Substance: NICOTINE
  15. PREVACID [Concomitant]
     Active Substance: LANSOPRAZOLE
  16. QNASL [Concomitant]
     Active Substance: BECLOMETHASONE DIPROPIONATE
  17. XYREM [Suspect]
     Active Substance: SODIUM OXYBATE
     Dosage: 2.25 G, SECOND DOSE
     Route: 048
     Dates: start: 201107, end: 201110
  18. ALLEGRA ALLERGY [Concomitant]
     Active Substance: FEXOFENADINE HYDROCHLORIDE
  19. LIPITOR [Concomitant]
     Active Substance: ATORVASTATIN CALCIUM
  20. NORCO [Concomitant]
     Active Substance: ACETAMINOPHEN\HYDROCODONE BITARTRATE
  21. PRIMIDONE. [Concomitant]
     Active Substance: PRIMIDONE
  22. PROTONIX [Concomitant]
     Active Substance: PANTOPRAZOLE SODIUM
  23. ZOLOFT [Concomitant]
     Active Substance: SERTRALINE HYDROCHLORIDE
  24. PRIMIDONE. [Concomitant]
     Active Substance: PRIMIDONE
  25. HYDROCHLOROTHIAZIDE. [Concomitant]
     Active Substance: HYDROCHLOROTHIAZIDE
  26. ISOSORBIDE DINITRATE. [Concomitant]
     Active Substance: ISOSORBIDE DINITRATE
  27. XYREM [Suspect]
     Active Substance: SODIUM OXYBATE
     Indication: CATAPLEXY
     Dosage: 4.5 G, FIRST DOSE
     Route: 048
     Dates: start: 201107, end: 201110
  28. NEXIUM [Concomitant]
     Active Substance: ESOMEPRAZOLE MAGNESIUM
  29. PULMICORT TURBUHALER [Concomitant]
     Active Substance: BUDESONIDE
  30. ADVAIR HFA [Concomitant]
     Active Substance: FLUTICASONE PROPIONATE\SALMETEROL XINAFOATE
  31. ANAFRANIL [Concomitant]
     Active Substance: CLOMIPRAMINE HYDROCHLORIDE
  32. VOLTAREN [Concomitant]
     Active Substance: DICLOFENAC SODIUM
  33. DUONEB [Concomitant]
     Active Substance: ALBUTEROL SULFATE\IPRATROPIUM BROMIDE
  34. EPIPEN [Concomitant]
     Active Substance: EPINEPHRINE
  35. PROPRANOLOL [Concomitant]
     Active Substance: PROPRANOLOL\PROPRANOLOL HYDROCHLORIDE
  36. ADDERALL [Concomitant]
     Active Substance: AMPHETAMINE ASPARTATE\AMPHETAMINE SULFATE\DEXTROAMPHETAMINE SACCHARATE\DEXTROAMPHETAMINE SULFATE
  37. ALBUTEROL. [Concomitant]
     Active Substance: ALBUTEROL
  38. NITROLINGUAL [Concomitant]
     Active Substance: NITROGLYCERIN
  39. PRAVASTATIN SODIUM. [Concomitant]
     Active Substance: PRAVASTATIN SODIUM
  40. WELLBUTRIN [Concomitant]
     Active Substance: BUPROPION HYDROCHLORIDE
  41. FLEXERIL [Concomitant]
     Active Substance: CYCLOBENZAPRINE HYDROCHLORIDE
  42. NITROSTAT [Concomitant]
     Active Substance: NITROGLYCERIN
  43. SINGULAIR [Concomitant]
     Active Substance: MONTELUKAST SODIUM
  44. ZYRTEC [Concomitant]
     Active Substance: CETIRIZINE HYDROCHLORIDE
  45. PROMETHAZINE [Concomitant]
     Active Substance: PROMETHAZINE\PROMETHAZINE HYDROCHLORIDE
  46. QNASL [Concomitant]
     Active Substance: BECLOMETHASONE DIPROPIONATE
  47. XYREM [Suspect]
     Active Substance: SODIUM OXYBATE
     Indication: NARCOLEPSY
     Dosage: 2.25 G, BID
     Route: 048
     Dates: start: 201106, end: 201107
  48. IMDUR [Concomitant]
     Active Substance: ISOSORBIDE MONONITRATE
  49. ATROVENT [Concomitant]
     Active Substance: IPRATROPIUM BROMIDE

REACTIONS (2)
  - Hypertension [Not Recovered/Not Resolved]
  - Condition aggravated [Not Recovered/Not Resolved]
